FAERS Safety Report 23885149 (Version 1)
Quarter: 2024Q2

REPORT INFORMATION
  Report Type: Spontaneous
  Country: AU (occurrence: AU)
  Receive Date: 20240522
  Receipt Date: 20240522
  Transmission Date: 20240716
  Serious: Yes (Hospitalization, Other)
  Sender: FDA-Public Use
  Company Number: AU-SUN PHARMACEUTICAL INDUSTRIES LTD-2024R1-447236

PATIENT
  Age: 90 Year
  Sex: Male

DRUGS (3)
  1. LENALIDOMIDE [Suspect]
     Active Substance: LENALIDOMIDE
     Indication: Plasma cell myeloma
     Dosage: UNK (10 MILLIGRAM)
     Route: 065
     Dates: start: 20190919, end: 202403
  2. DEXAMETHASONE [Suspect]
     Active Substance: DEXAMETHASONE
     Indication: Plasma cell myeloma
     Dosage: UNK (12 MILLIGRAM)
     Route: 065
     Dates: start: 20190919, end: 202403
  3. ISATUXIMAB [Suspect]
     Active Substance: ISATUXIMAB
     Indication: Plasma cell myeloma
     Dosage: UNK (10 MILLIGRAM)
     Route: 065
     Dates: start: 20200325, end: 20200325

REACTIONS (1)
  - Listeriosis [Recovered/Resolved]

NARRATIVE: CASE EVENT DATE: 20240331
